FAERS Safety Report 8390088-8 (Version None)
Quarter: 2012Q2

REPORT INFORMATION
  Report Type: 
  Country: None (occurrence: None)
  Receive Date: 20120529
  Receipt Date: 20120523
  Transmission Date: 20120825
  Serious: Yes (Life-Threatening)
  Sender: FDA-Public Use
  Company Number: NL-JNJFOC-20120517926

PATIENT

DRUGS (3)
  1. STELARA [Suspect]
     Dosage: THE PATIENT HAD RECEIVED 3 INJECTIONS AT THE TIME OF ADVERSE EVENT
     Route: 058
  2. STELARA [Suspect]
     Indication: PRODUCT USED FOR UNKNOWN INDICATION
     Dosage: THE PATIENT HAD RECEIVED 3 INJECTIONS AT THE TIME OF ADVERSE EVENT
     Route: 058
  3. STELARA [Suspect]
     Dosage: THE PATIENT HAD RECEIVED 3 INJECTIONS AT THE TIME OF ADVERSE EVENT
     Route: 058

REACTIONS (1)
  - MYOCARDIAL INFARCTION [None]
